FAERS Safety Report 8914333 (Version 6)
Quarter: 2024Q2

REPORT INFORMATION
  Report Type: Report from Study
  Country: CA (occurrence: CA)
  Receive Date: 20121119
  Receipt Date: 20240625
  Transmission Date: 20240716
  Serious: No
  Sender: FDA-Public Use
  Company Number: CA-JNJFOC-20121104949

PATIENT
  Age: 61 Year
  Sex: Male
  Weight: 123.49 kg

DRUGS (16)
  1. STELARA [Suspect]
     Active Substance: USTEKINUMAB
     Indication: Psoriasis
     Route: 058
     Dates: start: 200904
  2. STELARA [Suspect]
     Active Substance: USTEKINUMAB
     Route: 058
     Dates: start: 20090429, end: 20100201
  3. STELARA [Suspect]
     Active Substance: USTEKINUMAB
     Dosage: 10/APR/2017 END DATE IS AFTER THE LRD
     Route: 058
     Dates: start: 20111227
  4. STELARA [Suspect]
     Active Substance: USTEKINUMAB
     Route: 058
     Dates: start: 20100501, end: 20110927
  5. NITROGLYCERIN [Concomitant]
     Active Substance: NITROGLYCERIN
     Route: 065
     Dates: start: 1997
  6. LANTUS [Concomitant]
     Active Substance: INSULIN GLARGINE
     Route: 065
     Dates: start: 200908
  7. PERINDOPRIL [Concomitant]
     Active Substance: PERINDOPRIL
     Route: 048
     Dates: start: 1997
  8. FUROSEMIDE [Concomitant]
     Active Substance: FUROSEMIDE
     Route: 048
     Dates: start: 1997
  9. METOPROLOL [Concomitant]
     Active Substance: METOPROLOL
     Route: 048
     Dates: start: 1997
  10. METFORMIN [Concomitant]
     Active Substance: METFORMIN HYDROCHLORIDE
     Route: 048
     Dates: start: 1994
  11. ADALAT [Concomitant]
     Active Substance: NIFEDIPINE
     Route: 048
     Dates: start: 200908
  12. NOVORAPID [Concomitant]
     Active Substance: INSULIN ASPART
     Dosage: 50 UTS
     Route: 065
     Dates: start: 2011
  13. CRESTOR [Concomitant]
     Active Substance: ROSUVASTATIN CALCIUM
     Route: 048
     Dates: start: 2009
  14. PLAVIX [Concomitant]
     Active Substance: CLOPIDOGREL BISULFATE
     Dosage: 50 UTS
     Route: 048
     Dates: start: 2009
  15. DIOVAN / HCTZ [Concomitant]
     Dosage: 160/12.5
     Route: 048
     Dates: start: 2009
  16. NITROGLYCERIN [Concomitant]
     Active Substance: NITROGLYCERIN
     Dosage: Q 5 MIN X 3 S/L AS NEEDED
     Route: 048
     Dates: start: 1997

REACTIONS (1)
  - Malignant melanoma in situ [Recovered/Resolved]

NARRATIVE: CASE EVENT DATE: 20120425
